FAERS Safety Report 13868238 (Version 1)
Quarter: 2017Q3

REPORT INFORMATION
  Report Type: Report from Study
  Country: DE (occurrence: DE)
  Receive Date: 20170815
  Receipt Date: 20170815
  Transmission Date: 20171127
  Serious: Yes (Hospitalization)
  Sender: FDA-Public Use
  Company Number: DE-BIOGEN-2017BI00443821

PATIENT
  Age: 51 Year
  Sex: Female

DRUGS (1)
  1. AVONEX [Suspect]
     Active Substance: INTERFERON BETA-1A
     Indication: MULTIPLE SCLEROSIS
     Route: 030
     Dates: start: 20170324, end: 201706

REACTIONS (2)
  - General physical health deterioration [Not Recovered/Not Resolved]
  - Nuclear magnetic resonance imaging abnormal [Not Recovered/Not Resolved]

NARRATIVE: CASE EVENT DATE: 201705
